FAERS Safety Report 6366580-4 (Version None)
Quarter: 2009Q3

REPORT INFORMATION
  Report Type: 
  Country: None (occurrence: None)
  Receive Date: 20090921
  Receipt Date: 20090908
  Transmission Date: 20100115
  Serious: Yes (Other)
  Sender: FDA-Public Use
  Company Number: US-JNJFOC-20090902940

PATIENT
  Age: 72 Year
  Sex: Female

DRUGS (3)
  1. INFLIXIMAB [Suspect]
     Dosage: 3RD DOSE
     Route: 042
  2. INFLIXIMAB [Suspect]
     Route: 042
  3. INFLIXIMAB [Suspect]
     Indication: SARCOIDOSIS
     Route: 042

REACTIONS (4)
  - ARTERIAL THROMBOSIS [None]
  - CARDIOLIPIN ANTIBODY POSITIVE [None]
  - THERAPEUTIC RESPONSE UNEXPECTED [None]
  - VENOUS THROMBOSIS [None]
